FAERS Safety Report 17778917 (Version 1)
Quarter: 2020Q2

REPORT INFORMATION
  Report Type: Report from Study
  Country: GB (occurrence: GB)
  Receive Date: 20200514
  Receipt Date: 20200514
  Transmission Date: 20200714
  Serious: Yes (Other)
  Sender: FDA-Public Use
  Company Number: GB-SUN PHARMACEUTICAL INDUSTRIES LTD-2020RR-246484

PATIENT
  Sex: Male

DRUGS (2)
  1. VALPROIC ACID. [Suspect]
     Active Substance: VALPROIC ACID
     Indication: PRODUCT USED FOR UNKNOWN INDICATION
     Dosage: 1200 MILLIGRAM, UNK
     Route: 064
  2. CARBAMAZEPINE. [Suspect]
     Active Substance: CARBAMAZEPINE
     Indication: PRODUCT USED FOR UNKNOWN INDICATION
     Dosage: 400 MILLIGRAM, UNK
     Route: 064

REACTIONS (9)
  - Foetal exposure during pregnancy [Unknown]
  - Plagiocephaly [Unknown]
  - Scoliosis [Unknown]
  - Cryptorchism [Unknown]
  - Hypospadias [Unknown]
  - Cerebral ventricle dilatation [Unknown]
  - Multiple congenital abnormalities [Unknown]
  - Developmental delay [Unknown]
  - Congenital eye disorder [Unknown]
